FAERS Safety Report 21619594 (Version 1)
Quarter: 2022Q4

REPORT INFORMATION
  Report Type: Spontaneous
  Country: GB (occurrence: GB)
  Receive Date: 20221121
  Receipt Date: 20221121
  Transmission Date: 20230113
  Serious: Yes (Congenital Anomaly)
  Sender: FDA-Public Use
  Company Number: US-ABBVIE-4207383

PATIENT
  Sex: Female
  Weight: 218 kg

DRUGS (2)
  1. DEPAKOTE [Suspect]
     Active Substance: DIVALPROEX SODIUM
     Indication: Schizophrenia
     Route: 048
     Dates: start: 20110624
  2. QUETIAPINE [Concomitant]
     Active Substance: QUETIAPINE
     Indication: Depression
     Dates: start: 20220624

REACTIONS (5)
  - Headache [Not Recovered/Not Resolved]
  - Breath odour [Not Recovered/Not Resolved]
  - Overweight [Not Recovered/Not Resolved]
  - Urine output [Not Recovered/Not Resolved]
  - Back pain [Not Recovered/Not Resolved]
